FAERS Safety Report 9440141 (Version 2)
Quarter: 2013Q3

REPORT INFORMATION
  Report Type: Spontaneous
  Country: US (occurrence: US)
  Receive Date: 20130805
  Receipt Date: 20130915
  Transmission Date: 20140515
  Serious: Yes (Other)
  Sender: FDA-Public Use
  Company Number: US-PFIZER INC-2013226678

PATIENT
  Age: 38 Year
  Sex: Female
  Weight: 72.11 kg

DRUGS (3)
  1. GEODON [Suspect]
     Indication: PSYCHOTIC DISORDER
     Dosage: UNK
     Dates: end: 2012
  2. NEURONTIN [Concomitant]
     Dosage: UNK
  3. KEPPRA [Concomitant]
     Dosage: UNK

REACTIONS (2)
  - Myocardial infarction [Unknown]
  - Hypertension [Unknown]
